FAERS Safety Report 4987766-7 (Version None)
Quarter: 2006Q2

REPORT INFORMATION
  Report Type: 
  Country: None (occurrence: None)
  Receive Date: 20060426
  Receipt Date: 20060406
  Transmission Date: 20061013
  Serious: Yes (Death)
  Sender: FDA-Public Use
  Company Number: AU200603006430

PATIENT
  Age: 75 Year
  Sex: Female

DRUGS (6)
  1. XIGRIS [Suspect]
     Indication: SEPTIC SHOCK
     Dosage: 24 UG/KG/HR, OTHER,
     Dates: start: 20060322
  2. HYDROCORTISONE [Concomitant]
  3. MILRINONE [Concomitant]
  4. NORADRENALINE (NOREPINEPHRINE) [Concomitant]
  5. VASOPRESSIN [Concomitant]
  6. ANTIBIOTICS [Concomitant]

REACTIONS (3)
  - PLATELET COUNT DECREASED [None]
  - RHABDOMYOLYSIS [None]
  - STAPHYLOCOCCAL SEPSIS [None]
